FAERS Safety Report 8210281-4 (Version None)
Quarter: 2012Q1

REPORT INFORMATION
  Report Type: 
  Country: None (occurrence: None)
  Receive Date: 20120314
  Receipt Date: 20111004
  Transmission Date: 20120608
  Serious: No
  Sender: FDA-Public Use
  Company Number: US-ASTRAZENECA-2011SE59410

PATIENT
  Age: 75 Year
  Sex: Male

DRUGS (3)
  1. LOSARTAN POTASSIUM [Suspect]
     Route: 065
  2. METOPROLOL SUCCINATE EXTENDED RELEASE [Suspect]
     Route: 048
  3. AMLODIPINE BESYLATE [Suspect]
     Route: 065

REACTIONS (1)
  - PROTEINURIA [None]
